FAERS Safety Report 8524326-5 (Version None)
Quarter: 2012Q3

REPORT INFORMATION
  Report Type: 
  Country: None (occurrence: None)
  Receive Date: 20120720
  Receipt Date: 20120712
  Transmission Date: 20120928
  Serious: Yes (Hospitalization)
  Sender: FDA-Public Use
  Company Number: US-B.I. PHARMACEUTICALS,INC./RIDGEFIELD-2011-BP-22160BP

PATIENT
  Sex: Male

DRUGS (4)
  1. PROTONIX [Concomitant]
  2. UNKNOWN HYPERTENSION MEDICATION [Concomitant]
     Indication: HYPERTENSION
     Route: 065
  3. TRADJENTA [Suspect]
     Indication: TYPE 2 DIABETES MELLITUS
     Dates: start: 20110701, end: 20110911
  4. CREON [Concomitant]
     Indication: PANCREATITIS
     Route: 048
     Dates: start: 20100101

REACTIONS (1)
  - PANCREATITIS [None]
